FAERS Safety Report 5632581-4 (Version None)
Quarter: 2008Q1

REPORT INFORMATION
  Report Type: 
  Country: None (occurrence: None)
  Receive Date: 20080220
  Receipt Date: 20080213
  Transmission Date: 20080703
  Serious: Yes (Hospitalization, Other)
  Sender: FDA-Public Use
  Company Number: BR-PFIZER INC-2007063344

PATIENT
  Sex: Female
  Weight: 80 kg

DRUGS (1)
  1. DEPO-PROVERA SUSPENSION/INJ [Suspect]
     Indication: CONTRACEPTION
     Dates: start: 20030101, end: 20030101

REACTIONS (3)
  - EPILEPSY [None]
  - JOINT DISLOCATION [None]
  - MENSTRUATION IRREGULAR [None]
